FAERS Safety Report 10283999 (Version 3)
Quarter: 2015Q1

REPORT INFORMATION
  Report Type: Report from Study
  Country: US (occurrence: US)
  Receive Date: 20140708
  Receipt Date: 20150122
  Transmission Date: 20150720
  Serious: Yes (Hospitalization)
  Sender: FDA-Public Use
  Company Number: US-SA-2014SA086131

PATIENT
  Age: 45 Year
  Sex: Male
  Weight: 84 kg

DRUGS (17)
  1. OXALIPLATIN. [Suspect]
     Active Substance: OXALIPLATIN
     Indication: PANCREATIC CARCINOMA
     Dosage: FREQUENCY: EVERY 2 WEEKS
     Route: 042
     Dates: start: 20140501, end: 20140501
  2. DEXAMETHASONE. [Concomitant]
     Active Substance: DEXAMETHASONE
  3. EMLA [Concomitant]
     Active Substance: LIDOCAINE\PRILOCAINE
  4. LEUCOVORIN [Suspect]
     Active Substance: LEUCOVORIN
     Indication: PANCREATIC CARCINOMA
     Dosage: FREQUENCY: EVERY 2 WEEKS
     Route: 042
     Dates: start: 20140501
  5. ONDASETRON [Concomitant]
  6. FLUOROURACIL. [Suspect]
     Active Substance: FLUOROURACIL
     Indication: PANCREATIC CARCINOMA
     Dosage: FREQUENCY: EVERY 2 WEEKS
     Route: 042
     Dates: start: 20140501
  7. CURCUMA LONGA RHIZOME [Concomitant]
  8. FLUOROURACIL. [Suspect]
     Active Substance: FLUOROURACIL
     Indication: PANCREATIC CARCINOMA
     Dosage: FREQUENCY: EVERY 2 WEEKS
     Route: 040
     Dates: start: 20140515
  9. ZOFRAN [Concomitant]
     Active Substance: ONDANSETRON HYDROCHLORIDE
  10. IRINOTECAN HYDROCHLORIDE. [Suspect]
     Active Substance: IRINOTECAN HYDROCHLORIDE
     Indication: PANCREATIC CARCINOMA
     Dosage: FREQUENCY: EVERY 2 WEEKS
     Route: 042
     Dates: start: 20140515
  11. IRINOTECAN HYDROCHLORIDE. [Suspect]
     Active Substance: IRINOTECAN HYDROCHLORIDE
     Indication: PANCREATIC CARCINOMA
     Dosage: FREQUENCY: EVERY 2 WEEKS
     Route: 042
     Dates: start: 20140501, end: 20140501
  12. PROCHLORPERAZINE MALEATE. [Concomitant]
     Active Substance: PROCHLORPERAZINE MALEATE
  13. FLUOROURACIL. [Suspect]
     Active Substance: FLUOROURACIL
     Indication: PANCREATIC CARCINOMA
     Dosage: FREQUENCY: EVERY 2 WEEKS
     Route: 040
     Dates: start: 20140501, end: 20140501
  14. FLUOROURACIL. [Suspect]
     Active Substance: FLUOROURACIL
     Indication: PANCREATIC CARCINOMA
     Dosage: FREQUENCY: EVERY 2 WEEKS
     Route: 042
     Dates: start: 20140515
  15. OXALIPLATIN. [Suspect]
     Active Substance: OXALIPLATIN
     Indication: PANCREATIC CARCINOMA
     Dosage: FREQUENCY: EVERY 2 WEEKS
     Route: 042
     Dates: start: 20140515
  16. SILYBUM MARIANUM [Concomitant]
  17. VITAMIN D [Concomitant]
     Active Substance: CHOLECALCIFEROL

REACTIONS (2)
  - Muscular weakness [Recovered/Resolved]
  - Pyrexia [Recovered/Resolved]

NARRATIVE: CASE EVENT DATE: 20140511
